FAERS Safety Report 7371337-1 (Version None)
Quarter: 2011Q1

REPORT INFORMATION
  Report Type: 
  Country: None (occurrence: None)
  Receive Date: 20110324
  Receipt Date: 20101018
  Transmission Date: 20110831
  Serious: Yes (Other)
  Sender: FDA-Public Use
  Company Number: US-BAYER-201013286NA

PATIENT
  Sex: Female
  Weight: 54.545 kg

DRUGS (31)
  1. CLINDESSE [Concomitant]
     Dosage: WITH REFILL 3 MONTHS
     Route: 061
     Dates: start: 20080101
  2. NORVASC [Concomitant]
  3. DICYCLOMINE [Concomitant]
     Dates: start: 20081201
  4. UNCODEABLE ^UNCLASSIFIABLE^ [Concomitant]
  5. CITALOPRAM [Concomitant]
     Dates: start: 20080801
  6. YASMIN [Suspect]
     Route: 048
     Dates: start: 20081028, end: 20081201
  7. YAZ [Suspect]
     Indication: MENORRHAGIA
     Dosage: AS USED DOSE: UNK
     Route: 048
     Dates: start: 20080101, end: 20081028
  8. AMOXICILLIN [Concomitant]
     Dates: start: 20081201
  9. DIFLUCAN [Concomitant]
     Dates: start: 20080901, end: 20081215
  10. HYDROCODONE BITARTRATE AND ACETAMINOPHEN [Concomitant]
     Dates: start: 20080201
  11. CYCLOBENZAPRINE [Concomitant]
     Dates: start: 20080301
  12. PRENATAL VITAMINS [Concomitant]
  13. DOXYCYCLINE HYCLATE [Concomitant]
     Dates: start: 20080901, end: 20081215
  14. UNCODEABLE ^UNCLASSIFIABLE^ [Concomitant]
     Dates: start: 20080801
  15. FLUZONE [Concomitant]
     Dates: start: 20080901
  16. FLUTICASONE PROPIONATE [Concomitant]
     Dates: start: 20080201
  17. YASMIN [Suspect]
     Indication: MENORRHAGIA
     Route: 048
     Dates: start: 20071204, end: 20071215
  18. CELEXA [Concomitant]
     Dates: start: 20081201
  19. DICYCLOMINE [Concomitant]
     Dates: start: 20080901
  20. FLUCONAZOLE [Concomitant]
     Dates: start: 20080801
  21. ACYCLOVIR [Concomitant]
     Dates: start: 20080201
  22. ACYCLOVIR [Concomitant]
     Dates: start: 20081201
  23. FISH OIL [Concomitant]
     Dates: start: 20081201
  24. UNCODEABLE ^UNCLASSIFIABLE^ [Concomitant]
     Dates: start: 20090101
  25. LOESTRIN FE 1/20 [Concomitant]
     Indication: ORAL CONTRACEPTION
     Route: 048
     Dates: start: 20091217
  26. LEXAPRO [Concomitant]
  27. DOXYCYCLINE [Concomitant]
     Dates: start: 20080801
  28. FEXOFENADINE [Concomitant]
     Dates: start: 20090101
  29. TRIAMCINOLONE [Concomitant]
     Dates: start: 20090101
  30. OCELLA [Suspect]
     Indication: MENORRHAGIA
     Route: 048
     Dates: start: 20081101, end: 20091115
  31. CEPHALEXIN [Concomitant]
     Dates: start: 20080201

REACTIONS (3)
  - CHOLELITHIASIS [None]
  - ABDOMINAL PAIN UPPER [None]
  - CHOLECYSTITIS CHRONIC [None]
